FAERS Safety Report 7458133-1 (Version None)
Quarter: 2011Q1

REPORT INFORMATION
  Report Type: 
  Country: None (occurrence: None)
  Receive Date: 20110302
  Receipt Date: 20101014
  Transmission Date: 20110831
  Serious: Yes (Other)
  Sender: FDA-Public Use
  Company Number: 163-21880-10061905

PATIENT
  Age: 62 Year
  Sex: Female

DRUGS (7)
  1. FENTANYL [Concomitant]
  2. VELCADE [Suspect]
     Indication: PRODUCT USED FOR UNKNOWN INDICATION
     Dosage: 1 MG/M2, DAYS 1,4,8,11, 21 DAY CYCLE, PO
     Route: 048
  3. PERIDEX (CHLORHEXIDINE GLUCONATE) [Concomitant]
  4. REVLIMID [Suspect]
     Indication: MULTIPLE MYELOMA
     Dosage: 15 MG, 1 IN 1 D, PO; 15 MG, QOD, PO; 25 MG, DAILY DAYS 1-14 OF 28 DAY CYCLE
     Route: 048
     Dates: start: 20100610
  5. REVLIMID [Suspect]
     Indication: MULTIPLE MYELOMA
     Dosage: 15 MG, 1 IN 1 D, PO; 15 MG, QOD, PO; 25 MG, DAILY DAYS 1-14 OF 28 DAY CYCLE
     Route: 048
     Dates: start: 20090227, end: 20100217
  6. REVLIMID [Suspect]
     Indication: MULTIPLE MYELOMA
     Dosage: 15 MG, 1 IN 1 D, PO; 15 MG, QOD, PO; 25 MG, DAILY DAYS 1-14 OF 28 DAY CYCLE
     Route: 048
     Dates: start: 20091013
  7. DEXAMETHASONE [Suspect]
     Indication: PRODUCT USED FOR UNKNOWN INDICATION
     Dosage: 40 MG, WEEKLY, PO
     Route: 048

REACTIONS (10)
  - PELVIC FRACTURE [None]
  - BONE MARROW FAILURE [None]
  - THROMBOCYTOPENIA [None]
  - DIARRHOEA [None]
  - FATIGUE [None]
  - PARAESTHESIA [None]
  - ANAEMIA [None]
  - MUCOSAL INFLAMMATION [None]
  - CELLULITIS [None]
  - WOUND [None]
